FAERS Safety Report 6397777-5 (Version None)
Quarter: 2009Q4

REPORT INFORMATION
  Report Type: 
  Country: None (occurrence: None)
  Receive Date: 20091012
  Receipt Date: 20091006
  Transmission Date: 20100525
  Serious: Yes (Hospitalization)
  Sender: FDA-Public Use
  Company Number: US-KINGPHARMUSA00001-K200901230

PATIENT
  Age: 85 Year
  Sex: Male

DRUGS (13)
  1. ALTACE [Suspect]
     Dosage: 10 MG, QD
     Route: 048
     Dates: end: 20090309
  2. CELECTOL [Suspect]
     Dosage: 100 MG, QD
     Route: 048
     Dates: end: 20090309
  3. MODOPAR [Suspect]
     Dosage: 375 MG, QD
     Route: 048
     Dates: start: 20090201, end: 20090309
  4. GABAPENTIN [Suspect]
     Indication: GAIT DISTURBANCE
     Dosage: 900 MG, QD
     Route: 048
     Dates: start: 20090201, end: 20090309
  5. MONICOR [Suspect]
     Dosage: 80 MG, QD
     Route: 048
     Dates: end: 20090309
  6. ALDACTONE [Suspect]
     Dosage: 25 MG, QD
     Route: 048
     Dates: end: 20090309
  7. FUROSEMIDE [Concomitant]
  8. PLAVIX [Concomitant]
     Route: 048
  9. KARDEGIC [Concomitant]
  10. DIFFU K [Concomitant]
     Route: 048
  11. BETAHISTINE HYDROCHLORIDE [Concomitant]
     Route: 048
  12. ALLOPURINOL [Concomitant]
     Route: 048
  13. SIMVASTATIN [Concomitant]
     Route: 048

REACTIONS (6)
  - AGGRESSION [None]
  - BRADYCARDIA [None]
  - CONFUSIONAL STATE [None]
  - HYPOTENSION [None]
  - NIGHTMARE [None]
  - SOMNOLENCE [None]
